FAERS Safety Report 11330519 (Version 1)
Quarter: 2015Q3

REPORT INFORMATION
  Report Type: Spontaneous
  Country: US (occurrence: US)
  Receive Date: 20150803
  Receipt Date: 20150803
  Transmission Date: 20151125
  Serious: No
  Sender: FDA-Public Use
  Company Number: US-TAKEDA-2015TUS002457

PATIENT
  Age: 64 Year
  Sex: Male
  Weight: 77.98 kg

DRUGS (1)
  1. COLCHICINE. [Suspect]
     Active Substance: COLCHICINE
     Indication: GOUT
     Dosage: TWO TABLETS INITIALLY, THEN AFTER ONE HOUR ONE TABLET FOLLOWED BY ONE TABLET EVERY HOUR
     Route: 048
     Dates: start: 20150209, end: 20150209

REACTIONS (2)
  - Drug ineffective [Not Recovered/Not Resolved]
  - Drug prescribing error [Recovered/Resolved]

NARRATIVE: CASE EVENT DATE: 20150209
